FAERS Safety Report 13352218 (Version 1)
Quarter: 2017Q1

REPORT INFORMATION
  Report Type: Spontaneous
  Country: US (occurrence: US)
  Receive Date: 20170320
  Receipt Date: 20170320
  Transmission Date: 20170429
  Serious: No
  Sender: FDA-Public Use
  Company Number: US-SA-2016SA089688

PATIENT
  Age: 76 Year
  Sex: Male
  Weight: 164 kg

DRUGS (1)
  1. NASACORT ALLERGY 24HR [Suspect]
     Active Substance: TRIAMCINOLONE ACETONIDE
     Indication: SEASONAL ALLERGY
     Dosage: DOSAGE FORM: NASAL SPRAY?DOSE: 1 SPRAY DAILY IN MORNING.
     Route: 065

REACTIONS (1)
  - Benign prostatic hyperplasia [Unknown]
